FAERS Safety Report 14469659 (Version 5)
Quarter: 2019Q1

REPORT INFORMATION
  Report Type: Spontaneous
  Country: DE (occurrence: DE)
  Receive Date: 20180131
  Receipt Date: 20190128
  Transmission Date: 20190417
  Serious: Yes (Other)
  Sender: FDA-Public Use
  Company Number: DE-MYLANLABS-2018M1005707

PATIENT
  Sex: Female
  Weight: 42 kg

DRUGS (7)
  1. REMSIMA [Suspect]
     Active Substance: INFLIXIMAB
     Indication: PSORIASIS
     Dosage: 200 MILLIGRAM, CYCLE, EVERY 4 WEEKS
     Route: 042
     Dates: start: 20160701, end: 20160701
  2. REMSIMA [Suspect]
     Active Substance: INFLIXIMAB
     Dosage: 200 MG, CYCLIC (EVERY FOUR WEEKS)
     Route: 042
     Dates: start: 20160728, end: 20160728
  3. REMSIMA [Suspect]
     Active Substance: INFLIXIMAB
     Dosage: 200 MG, UNK, EVERY 4 WEEKS
     Route: 042
     Dates: start: 20160728, end: 20160728
  4. METHOTREXATE. [Suspect]
     Active Substance: METHOTREXATE
     Indication: PSORIASIS
     Dosage: 5 MG, WEEKLY
     Route: 065
     Dates: start: 20160602
  5. METHOTREXATE. [Suspect]
     Active Substance: METHOTREXATE
     Indication: JUVENILE IDIOPATHIC ARTHRITIS
     Dosage: 5 MILLIGRAM, QW, WEEKLY
     Route: 065
     Dates: start: 20160602
  6. PREDNISONE. [Concomitant]
     Active Substance: PREDNISONE
     Indication: PRODUCT USED FOR UNKNOWN INDICATION
     Dosage: UNK
     Route: 065
     Dates: start: 20160329
  7. REMSIMA [Suspect]
     Active Substance: INFLIXIMAB
     Indication: JUVENILE IDIOPATHIC ARTHRITIS
     Dosage: 200 MG, CYCLIC EVERY FOUR WEEKS
     Route: 042
     Dates: start: 20160701, end: 20160701

REACTIONS (5)
  - Inappropriate schedule of product administration [Unknown]
  - Contraindicated product administered [Unknown]
  - Off label use [Unknown]
  - Product use in unapproved indication [Unknown]
  - Anaphylactic reaction [Recovered/Resolved]

NARRATIVE: CASE EVENT DATE: 20160701
